FAERS Safety Report 5069229-6 (Version None)
Quarter: 2006Q3

REPORT INFORMATION
  Report Type: 
  Country: None (occurrence: None)
  Receive Date: 20060803
  Receipt Date: 20060710
  Transmission Date: 20061208
  Serious: Yes (Life-Threatening, Hospitalization)
  Sender: FDA-Public Use
  Company Number: PHBS2006JP10426

PATIENT
  Age: 68 Year
  Sex: Male
  Weight: 58 kg

DRUGS (6)
  1. TEGRETOL [Suspect]
     Indication: TRIGEMINAL NEURALGIA
     Dosage: 600 MG/DAY
     Route: 048
     Dates: start: 20060501, end: 20060616
  2. FINIBAX [Concomitant]
     Route: 065
     Dates: start: 20060618
  3. PRODIF [Concomitant]
     Route: 065
     Dates: start: 20060618
  4. IMMUNE GLOBULIN INTRAVENOUS (HUMAN) [Concomitant]
     Route: 065
     Dates: start: 20060618
  5. VOLTAREN [Concomitant]
     Dosage: 75 MG/DAY
     Route: 065
  6. MUCOSTA [Concomitant]
     Route: 065

REACTIONS (16)
  - ABSCESS DRAINAGE [None]
  - ABSCESS NECK [None]
  - AGRANULOCYTOSIS [None]
  - ALANINE AMINOTRANSFERASE INCREASED [None]
  - BLOOD ALKALINE PHOSPHATASE INCREASED [None]
  - HAEMATOCRIT DECREASED [None]
  - HAEMOGLOBIN DECREASED [None]
  - HEADACHE [None]
  - LYMPHOCYTE COUNT INCREASED [None]
  - MALAISE [None]
  - NEUTROPHIL COUNT DECREASED [None]
  - PERITONSILLAR ABSCESS [None]
  - PHARYNGOLARYNGEAL PAIN [None]
  - RED BLOOD CELL COUNT DECREASED [None]
  - TONSILLITIS [None]
  - WHITE BLOOD CELL COUNT DECREASED [None]
